FAERS Safety Report 23539060 (Version 1)
Quarter: 2024Q1

REPORT INFORMATION
  Report Type: Report from Study
  Country: FR (occurrence: FR)
  Receive Date: 20240219
  Receipt Date: 20240219
  Transmission Date: 20240409
  Serious: Yes (Hospitalization)
  Sender: FDA-Public Use
  Company Number: FR-SERVIER-S23015181

PATIENT

DRUGS (10)
  1. PEGASPARGASE [Suspect]
     Active Substance: PEGASPARGASE
     Indication: Acute lymphocytic leukaemia
     Dosage: 1350 IU, INTENSIFICATION 1
     Route: 042
     Dates: start: 20200706, end: 20200706
  2. ADRIAMYCIN [Suspect]
     Active Substance: DOXORUBICIN HYDROCHLORIDE
     Indication: Acute lymphocytic leukaemia
     Dosage: 16.4 MG D1, D8, D15, D22
     Route: 042
     Dates: start: 20200703, end: 20200724
  3. VINCRISTINE [Suspect]
     Active Substance: VINCRISTINE
     Indication: Acute lymphocytic leukaemia
     Dosage: 0.8 MG, D1, D8, D15, D22
     Route: 042
     Dates: start: 20200703, end: 20200724
  4. DEXAMETHASONE [Suspect]
     Active Substance: DEXAMETHASONE
     Indication: Acute lymphocytic leukaemia
     Dosage: 5 MG, D 1-7, D15-21
     Route: 048
     Dates: start: 20200703, end: 20200723
  5. METHOTREXATE [Suspect]
     Active Substance: METHOTREXATE
     Indication: Acute lymphocytic leukaemia
     Dosage: 10 MG, D4, D31 INTENSIFICATION
     Route: 037
     Dates: start: 20200706, end: 20200811
  6. HYDROCORTISONE [Suspect]
     Active Substance: HYDROCORTISONE
     Indication: Acute lymphocytic leukaemia
     Dosage: 12.5 MG, D4, D31 INTENSIFICATION
     Route: 037
     Dates: start: 20200706, end: 20200811
  7. CYTARABINE [Suspect]
     Active Substance: CYTARABINE
     Indication: Acute lymphocytic leukaemia
     Dosage: 25 MG, D4, D31 INTENSIFICATION
     Route: 037
     Dates: start: 20200706, end: 20200811
  8. CYTARABINE [Suspect]
     Active Substance: CYTARABINE
     Dosage: 40 MG, D31 TO D34, D38 TO D41
     Route: 042
     Dates: start: 20200811, end: 20200820
  9. THIOGUANINE [Suspect]
     Active Substance: THIOGUANINE
     Indication: Acute lymphocytic leukaemia
     Dosage: 30 MG, D29-D42
     Route: 048
     Dates: start: 20200807, end: 20200821
  10. CYCLOPHOSPHAMIDE [Suspect]
     Active Substance: CYCLOPHOSPHAMIDE
     Indication: Acute lymphocytic leukaemia
     Dosage: 560 MG, D29
     Route: 042
     Dates: start: 20200807, end: 20200807

REACTIONS (1)
  - Pyrexia [Recovered/Resolved]

NARRATIVE: CASE EVENT DATE: 20200811
